FAERS Safety Report 5521056-9 (Version None)
Quarter: 2007Q4

REPORT INFORMATION
  Report Type: 
  Country: None (occurrence: None)
  Receive Date: 20071119
  Receipt Date: 20071108
  Transmission Date: 20080405
  Serious: Yes (Hospitalization)
  Sender: FDA-Public Use
  Company Number: DE-JNJFOC-20071000221

PATIENT
  Age: 83 Year
  Sex: Female

DRUGS (9)
  1. TARIVID [Suspect]
     Indication: NAUSEA
     Route: 042
  2. TARIVID [Suspect]
     Indication: DEHYDRATION
     Route: 042
  3. TARIVID [Suspect]
     Indication: DYSPHAGIA
     Route: 042
  4. TARIVID [Suspect]
     Indication: URINARY TRACT INFECTION
     Route: 042
  5. CITALOPRAM HYDROBROMIDE [Concomitant]
     Indication: DEPRESSION
     Route: 048
  6. OXAZEPAM [Concomitant]
     Indication: SLEEP DISORDER
     Route: 048
  7. BISOPROLOL FUMARATE [Concomitant]
     Indication: HYPERTENSION
     Route: 048
  8. NEXIUM [Concomitant]
     Indication: GASTRITIS
     Route: 048
  9. RAMIPRIL [Concomitant]
     Indication: HYPERTENSION
     Route: 048

REACTIONS (2)
  - CONFUSIONAL STATE [None]
  - VEIN DISCOLOURATION [None]
